FAERS Safety Report 4463054-2 (Version None)
Quarter: 2004Q3

REPORT INFORMATION
  Report Type: 
  Country: None (occurrence: None)
  Receive Date: 20040929
  Receipt Date: 20040916
  Transmission Date: 20050211
  Serious: Yes (Hospitalization)
  Sender: FDA-Public Use
  Company Number: 2004UW19447

PATIENT
  Age: 68 Year
  Sex: Female

DRUGS (6)
  1. CRESTOR [Suspect]
     Dates: start: 20040601
  2. CELEBREX [Concomitant]
  3. OSCAL [Concomitant]
  4. GLUCOSAMINE [Concomitant]
  5. NIACIN [Concomitant]
  6. VITAMIN E [Concomitant]

REACTIONS (3)
  - PANCREATIC NECROSIS [None]
  - PANCREATITIS [None]
  - PSEUDOCYST [None]
